APPROVED DRUG PRODUCT: CHLORTHALIDONE
Active Ingredient: CHLORTHALIDONE
Strength: 50MG
Dosage Form/Route: TABLET;ORAL
Application: A089591 | Product #001
Applicant: PIONEER PHARMACEUTICALS INC
Approved: Jul 21, 1988 | RLD: No | RS: No | Type: DISCN